FAERS Safety Report 11778276 (Version 1)
Quarter: 2015Q4

REPORT INFORMATION
  Report Type: Spontaneous
  Country: CN (occurrence: CN)
  Receive Date: 20151125
  Receipt Date: 20151125
  Transmission Date: 20160304
  Serious: Yes (Hospitalization, Other)
  Sender: FDA-Public Use
  Company Number: CN-GLAXOSMITHKLINE-K201320968

PATIENT

DRUGS (20)
  1. IBUPROFEN. [Suspect]
     Active Substance: IBUPROFEN
     Route: 065
  2. CEFACLOR. [Suspect]
     Active Substance: CEFACLOR
     Route: 065
  3. ASTRAGALUS GUMMIFER [Suspect]
     Active Substance: UNSPECIFIED INGREDIENT
     Route: 065
  4. CEFUROXIME. [Suspect]
     Active Substance: CEFUROXIME
     Route: 065
  5. AMPICILLIN [Suspect]
     Active Substance: AMPICILLIN
     Route: 065
  6. CLARITHROMYCIN. [Suspect]
     Active Substance: CLARITHROMYCIN
     Route: 065
  7. ISATIS ROOT [Suspect]
     Active Substance: UNSPECIFIED INGREDIENT
     Route: 065
  8. AMOXICILLIN. [Suspect]
     Active Substance: AMOXICILLIN
     Route: 065
  9. TINIDAZOLE. [Suspect]
     Active Substance: TINIDAZOLE
     Route: 065
  10. METAMIZOLE [Suspect]
     Active Substance: METAMIZOLE
     Route: 065
  11. CETIRIZINE HYDROCHLORIDE. [Suspect]
     Active Substance: CETIRIZINE HYDROCHLORIDE
     Route: 065
  12. MELOXICAM. [Suspect]
     Active Substance: MELOXICAM
     Route: 065
  13. CEFOXITIN [Suspect]
     Active Substance: CEFOXITIN SODIUM
     Route: 065
  14. PANAX GINSENG [Suspect]
     Active Substance: ASIAN GINSENG
     Route: 065
  15. METRONIDAZOLE. [Suspect]
     Active Substance: METRONIDAZOLE
     Route: 065
  16. LEVOFLOXACIN. [Suspect]
     Active Substance: LEVOFLOXACIN
     Route: 065
  17. PARACETAMOL [Suspect]
     Active Substance: ACETAMINOPHEN
     Route: 065
  18. SORAFENIB [Suspect]
     Active Substance: SORAFENIB
     Route: 065
  19. ACETYLSALICYLIC ACID [Suspect]
     Active Substance: ASPIRIN
     Route: 065
  20. OFLOXACIN. [Suspect]
     Active Substance: OFLOXACIN
     Route: 065

REACTIONS (1)
  - Rash morbilliform [Unknown]
